FAERS Safety Report 13589924 (Version 6)
Quarter: 2018Q1

REPORT INFORMATION
  Report Type: Spontaneous
  Country: US (occurrence: US)
  Receive Date: 20170530
  Receipt Date: 20180312
  Transmission Date: 20180508
  Serious: Yes (Congenital Anomaly, Other)
  Sender: FDA-Public Use
  Company Number: PHEH2017US016232

PATIENT
  Sex: Male

DRUGS (1)
  1. ZOFRAN [Suspect]
     Active Substance: ONDANSETRON HYDROCHLORIDE
     Indication: FOETAL EXPOSURE DURING PREGNANCY
     Dosage: MOTHER DOSE: 08 MG, PRN
     Route: 064

REACTIONS (19)
  - Cleft palate [Unknown]
  - Limb injury [Unknown]
  - Failure to thrive [Unknown]
  - Ecchymosis [Unknown]
  - Injury [Unknown]
  - Pharyngitis [Unknown]
  - Constipation [Unknown]
  - Contusion [Unknown]
  - Trisomy 21 [Unknown]
  - Gastrooesophageal reflux disease [Unknown]
  - Otitis media [Unknown]
  - Musculoskeletal pain [Unknown]
  - Sebaceous naevus [Unknown]
  - Cytogenetic abnormality [Unknown]
  - Spina bifida [Unknown]
  - Cleft lip [Unknown]
  - Foetal exposure during pregnancy [Unknown]
  - Abdominal pain [Unknown]
  - Peripheral swelling [Unknown]
